FAERS Safety Report 18395308 (Version 5)
Quarter: 2021Q3

REPORT INFORMATION
  Report Type: Other
  Country: BR (occurrence: BR)
  Receive Date: 20201017
  Receipt Date: 20210922
  Transmission Date: 20211014
  Serious: Yes (Other)
  Sender: FDA-Public Use
  Company Number: BR-ROCHE-2697531

PATIENT
  Age: 79 Year
  Sex: Female

DRUGS (10)
  1. XOLAIR [Suspect]
     Active Substance: OMALIZUMAB
     Route: 065
  2. XOLAIR [Suspect]
     Active Substance: OMALIZUMAB
     Dosage: 300 MG (2 AMPOUSLE OF 150 MG), EVERY 15 DAYS
     Route: 058
  3. XOLAIR [Suspect]
     Active Substance: OMALIZUMAB
     Route: 065
     Dates: start: 201911, end: 202012
  4. BENICAR [Concomitant]
     Active Substance: OLMESARTAN MEDOXOMIL
     Indication: BLOOD PRESSURE INCREASED
     Route: 048
  5. PREDNISOLONE. [Concomitant]
     Active Substance: PREDNISOLONE
     Indication: HYPERSENSITIVITY
     Route: 048
  6. PREDNISOLONE. [Concomitant]
     Active Substance: PREDNISOLONE
     Indication: CHRONIC SPONTANEOUS URTICARIA
     Route: 048
  7. XOLAIR [Suspect]
     Active Substance: OMALIZUMAB
     Route: 058
     Dates: start: 20200716
  8. XOLAIR [Suspect]
     Active Substance: OMALIZUMAB
     Route: 058
     Dates: start: 20201014
  9. XOLAIR [Suspect]
     Active Substance: OMALIZUMAB
     Indication: CHRONIC SPONTANEOUS URTICARIA
     Dosage: QMO  (150MG 2 AMPOULE)
     Route: 058
     Dates: start: 201912, end: 202009
  10. ATENOLOL. [Concomitant]
     Active Substance: ATENOLOL
     Indication: BLOOD PRESSURE INCREASED
     Route: 048

REACTIONS (17)
  - Pain [Recovering/Resolving]
  - Hypoacusis [Unknown]
  - Drug ineffective [Unknown]
  - Sleep disorder [Unknown]
  - Pruritus [Not Recovered/Not Resolved]
  - Erythema [Recovered/Resolved]
  - Diabetes mellitus inadequate control [Recovering/Resolving]
  - Chronic spontaneous urticaria [Not Recovered/Not Resolved]
  - Asthenia [Not Recovered/Not Resolved]
  - Palpitations [Not Recovered/Not Resolved]
  - Diabetes mellitus [Not Recovered/Not Resolved]
  - Tachycardia [Recovering/Resolving]
  - Malaise [Not Recovered/Not Resolved]
  - Inappropriate schedule of product administration [Unknown]
  - Drug hypersensitivity [Recovered/Resolved]
  - Anuria [Recovered/Resolved]
  - Hypersensitivity [Unknown]

NARRATIVE: CASE EVENT DATE: 201912
